FAERS Safety Report 25041942 (Version 1)
Quarter: 2025Q1

REPORT INFORMATION
  Report Type: Spontaneous
  Country: CA (occurrence: CA)
  Receive Date: 20250305
  Receipt Date: 20250305
  Transmission Date: 20250409
  Serious: Yes (Hospitalization)
  Sender: ROCHE
  Company Number: CA-002147023-NVSC2025CA034085

PATIENT
  Age: 34 Year
  Sex: Female

DRUGS (6)
  1. OMALIZUMAB [Suspect]
     Active Substance: OMALIZUMAB
     Indication: Chronic spontaneous urticaria
     Route: 065
  2. OMALIZUMAB [Suspect]
     Active Substance: OMALIZUMAB
     Dosage: 300 MG (1 EVERY 4 WEEKS)
     Route: 050
  3. OMALIZUMAB [Suspect]
     Active Substance: OMALIZUMAB
     Dosage: 300 MG (1 EVERY 4 WEEKS)
     Route: 050
  4. OMALIZUMAB [Suspect]
     Active Substance: OMALIZUMAB
     Dosage: 300 MG (1 EVERY 4 WEEKS)
     Route: 065
  5. KETOTIFEN [Concomitant]
     Active Substance: KETOTIFEN
     Indication: Product used for unknown indication
     Dosage: 1 DOSAGE FORM, QD
     Route: 050
  6. PULMICORT TURBUHALER [Concomitant]
     Active Substance: BUDESONIDE
     Indication: Product used for unknown indication
     Dosage: 2 DOSAGE FORM, QD
     Route: 050

REACTIONS (13)
  - Agitation [Recovered/Resolved]
  - Dyspnoea [Recovered/Resolved]
  - Hyperphagia [Recovered/Resolved]
  - Weight decreased [Recovered/Resolved]
  - Oedema [Recovered/Resolved]
  - Respiratory disorder [Recovered/Resolved]
  - Autoimmune disorder [Recovered/Resolved]
  - Joint swelling [Recovered/Resolved]
  - Rubber sensitivity [Recovered/Resolved]
  - Tremor [Recovered/Resolved]
  - Urticaria [Recovered/Resolved]
  - Vomiting [Recovered/Resolved]
  - Drug ineffective [Unknown]
